FAERS Safety Report 18058789 (Version 1)
Quarter: 2020Q3

REPORT INFORMATION
  Report Type: Spontaneous
  Country: US (occurrence: US)
  Receive Date: 20200723
  Receipt Date: 20200723
  Transmission Date: 20201103
  Serious: No
  Sender: FDA-Public Use
  Company Number: US-KAMADA LIMITED-2019US011180

PATIENT

DRUGS (3)
  1. GLASSIA [Suspect]
     Active Substance: .ALPHA.1-PROTEINASE INHIBITOR HUMAN
     Indication: ALPHA-1 ANTITRYPSIN DEFICIENCY
     Dosage: 5700 MG (1000 MG VIAL)
     Route: 051
     Dates: start: 201902
  2. GLASSIA [Suspect]
     Active Substance: .ALPHA.1-PROTEINASE INHIBITOR HUMAN
     Dosage: UNK; 1000 MG VIAL
     Route: 065
     Dates: start: 2019, end: 20190923
  3. GLASSIA [Suspect]
     Active Substance: .ALPHA.1-PROTEINASE INHIBITOR HUMAN
     Dosage: 5700 MG, 1/WEEK (+ OR ? 15% FOR VIAL SIZE, ALL VIALS WERE 1000 MG VIALS)
     Route: 051
     Dates: start: 20190828

REACTIONS (5)
  - Swelling [Recovered/Resolved]
  - Palpitations [Unknown]
  - Arthralgia [Recovered/Resolved]
  - Tremor [Unknown]
  - Bone pain [Recovered/Resolved]

NARRATIVE: CASE EVENT DATE: 2019
